FAERS Safety Report 26009329 (Version 1)
Quarter: 2025Q4

REPORT INFORMATION
  Report Type: Spontaneous
  Country: EU (occurrence: EU)
  Receive Date: 20251107
  Receipt Date: 20251107
  Transmission Date: 20260118
  Serious: Yes (Other)
  Sender: REGENERON
  Company Number: EU-REGENERON PHARMACEUTICALS, INC.-2025-172046

PATIENT
  Age: 72 Year
  Sex: Female

DRUGS (3)
  1. LIBTAYO [Suspect]
     Active Substance: CEMIPLIMAB-RWLC
     Indication: Non-small cell lung cancer metastatic
     Dosage: UNK
     Dates: start: 20250916, end: 20251028
  2. CARBOPLATIN [Suspect]
     Active Substance: CARBOPLATIN
     Dosage: UNK, Q3W
     Dates: start: 20250916, end: 20251028
  3. PACLITAXEL [Suspect]
     Active Substance: PACLITAXEL
     Dosage: UNK, Q3W
     Dates: start: 20250916, end: 20251028

REACTIONS (1)
  - Gait disturbance [Not Recovered/Not Resolved]
